FAERS Safety Report 7491494-6 (Version None)
Quarter: 2011Q2

REPORT INFORMATION
  Report Type: 
  Country: None (occurrence: None)
  Receive Date: 20110519
  Receipt Date: 20110509
  Transmission Date: 20111010
  Serious: Yes (Hospitalization)
  Sender: FDA-Public Use
  Company Number: PHHY2011CA40452

PATIENT
  Sex: Male

DRUGS (2)
  1. SANDOSTATIN [Suspect]
     Indication: PANCREATIC FISTULA
     Route: 058
     Dates: start: 20110419, end: 20110504
  2. SANDOSTATIN LAR [Suspect]
     Indication: PANCREATIC FISTULA
     Dosage: 30 MG, QMO
     Route: 030
     Dates: start: 20110427

REACTIONS (1)
  - FEELING COLD [None]
